FAERS Safety Report 8138704-X (Version None)
Quarter: 2012Q1

REPORT INFORMATION
  Report Type: 
  Country: None (occurrence: None)
  Receive Date: 20120215
  Receipt Date: 20120209
  Transmission Date: 20120608
  Serious: Yes (Other)
  Sender: FDA-Public Use
  Company Number: US-MUTUAL PHARMACEUTICAL COMPANY, INC.-CLCY20120033

PATIENT
  Sex: Female

DRUGS (4)
  1. COLCRYS [Suspect]
     Indication: PERICARDITIS
     Route: 048
     Dates: start: 20120201
  2. TIMOLOL MALEATE [Concomitant]
     Indication: GLAUCOMA
     Route: 047
  3. PREDNISONE TAB [Suspect]
     Indication: PERICARDITIS
     Route: 048
     Dates: start: 20100101, end: 20110101
  4. COLCRYS [Suspect]
     Route: 048
     Dates: start: 20110401, end: 20120201

REACTIONS (2)
  - INTRAOCULAR PRESSURE INCREASED [None]
  - OFF LABEL USE [None]
